FAERS Safety Report 7654487-1 (Version None)
Quarter: 2011Q3

REPORT INFORMATION
  Report Type: 
  Country: None (occurrence: None)
  Receive Date: 20110803
  Receipt Date: 20110725
  Transmission Date: 20111222
  Serious: Yes (Other)
  Sender: FDA-Public Use
  Company Number: JP-ASTRAZENECA-2011SE44862

PATIENT
  Age: 68 Year
  Sex: Male

DRUGS (1)
  1. DIPRIVAN [Suspect]
     Indication: GENERAL ANAESTHESIA
     Dosage: 20 ML/HR FOR ABOUT 30 HRS FOR SEDATION
     Route: 042
     Dates: start: 20110723, end: 20110724

REACTIONS (3)
  - RENAL FAILURE [None]
  - MYOGLOBINURIA [None]
  - RHABDOMYOLYSIS [None]
